FAERS Safety Report 8037789-9 (Version None)
Quarter: 2012Q1

REPORT INFORMATION
  Report Type: 
  Country: None (occurrence: None)
  Receive Date: 20120111
  Receipt Date: 20120105
  Transmission Date: 20120608
  Serious: Yes (Other)
  Sender: FDA-Public Use
  Company Number: US-ASTRAZENECA-2012SE01227

PATIENT
  Sex: Female

DRUGS (1)
  1. CRESTOR [Suspect]
     Route: 048

REACTIONS (5)
  - TREMOR [None]
  - CONVULSION [None]
  - TRANSIENT ISCHAEMIC ATTACK [None]
  - AMNESIA [None]
  - HYPERTENSION [None]
